FAERS Safety Report 10078976 (Version 1)
Quarter: 2014Q2

REPORT INFORMATION
  Report Type: Spontaneous
  Country: US (occurrence: US)
  Receive Date: 20140415
  Receipt Date: 20140415
  Transmission Date: 20141212
  Serious: No
  Sender: FDA-Public Use
  Company Number: US-TEVA-475076USA

PATIENT
  Sex: Female
  Weight: 118.04 kg

DRUGS (2)
  1. PROAIR HFA [Suspect]
     Route: 055
  2. SYMBICORT [Suspect]

REACTIONS (2)
  - Dry mouth [Unknown]
  - Lip dry [Unknown]
